FAERS Safety Report 8993004 (Version 4)
Quarter: 2013Q3

REPORT INFORMATION
  Report Type: Report from Study
  Country: BR (occurrence: BR)
  Receive Date: 20130102
  Receipt Date: 20130820
  Transmission Date: 20140515
  Serious: Yes (Hospitalization, Other)
  Sender: FDA-Public Use
  Company Number: PHHY2012BR120747

PATIENT
  Sex: Female
  Weight: 65 kg

DRUGS (11)
  1. GALVUS MET [Suspect]
     Indication: DIABETES MELLITUS
     Dosage: 1 DF(850/50MG), BID (AT LUNCH AND AT DINNER)
     Dates: start: 200012, end: 201302
  2. GALVUS MET [Suspect]
     Dosage: 1 DF(850/50MG), BID (AT LUNCH AND AT DINNER)
  3. OLCADIL [Suspect]
     Dosage: UNK UKN, UNK
  4. ARNICA /06527501/ [Suspect]
     Dosage: UNK UKN, UNK
  5. DIOVAN [Concomitant]
     Indication: HYPERTENSION
     Dosage: 320 MG, QD
     Dates: start: 20081208
  6. DIOVAN [Concomitant]
     Indication: BLOOD PRESSURE ABNORMAL
  7. OMEPRAZOLE [Concomitant]
     Indication: GASTROINTESTINAL DISORDER
     Dosage: 10 MG, UNK
  8. NATRILIX [Concomitant]
     Indication: BLOOD PRESSURE ABNORMAL
     Dosage: 1.5 MG, QD (IN MORNING)
  9. ALENIA                             /01538101/ [Concomitant]
     Indication: LUNG DISORDER
     Dosage: 1 DF, BID (IN MORNING AND AT NIGHT)
     Dates: start: 201302
  10. AMARYL [Concomitant]
     Dosage: 2 MG, UNK
  11. GINKGO BILOBA [Concomitant]
     Indication: ANTICOAGULANT THERAPY
     Dosage: 1 DF, UNK

REACTIONS (12)
  - Pneumonia [Recovered/Resolved]
  - Urinary tract infection [Recovered/Resolved]
  - Asthenia [Recovered/Resolved]
  - Emphysema [Recovered/Resolved]
  - Blood glucose increased [Recovered/Resolved]
  - Brain hypoxia [Recovered/Resolved]
  - Head discomfort [Recovered/Resolved]
  - Fall [Recovered/Resolved]
  - Head injury [Recovered/Resolved]
  - Hypertension [Recovered/Resolved]
  - Labyrinthitis [Recovered/Resolved]
  - Limb discomfort [Unknown]
